FAERS Safety Report 7502621-6 (Version None)
Quarter: 2011Q2

REPORT INFORMATION
  Report Type: 
  Country: None (occurrence: None)
  Receive Date: 20110517
  Receipt Date: 20110509
  Transmission Date: 20111010
  Serious: Yes (Hospitalization)
  Sender: FDA-Public Use
  Company Number: 2011SP021024

PATIENT
  Age: 17 Year
  Sex: Female
  Weight: 104.3273 kg

DRUGS (2)
  1. IMPLANON [Suspect]
     Indication: PRODUCT USED FOR UNKNOWN INDICATION
     Dates: start: 20110301
  2. WARFARIN SODIUM [Concomitant]

REACTIONS (1)
  - SELF-INJURIOUS IDEATION [None]
